FAERS Safety Report 5706639-5 (Version None)
Quarter: 2008Q2

REPORT INFORMATION
  Report Type: 
  Country: None (occurrence: None)
  Receive Date: 20080416
  Receipt Date: 20080410
  Transmission Date: 20081010
  Serious: Yes (Hospitalization)
  Sender: FDA-Public Use
  Company Number: US-RANBAXY-2008US-14426

PATIENT

DRUGS (10)
  1. CIPROFLOXACIN [Suspect]
     Indication: URINARY TRACT INFECTION
     Dosage: UNK, UNK
     Route: 048
     Dates: start: 20080307, end: 20080319
  2. LEUCOVORIN [Suspect]
     Indication: COLON CANCER
     Dosage: 600 MG (660 MG, EVERY 2 WEEKS)
     Route: 042
     Dates: start: 20080312
  3. BEVACIZUMAB [Suspect]
     Indication: COLON CANCER
     Dosage: 300 MG, (300 MG, EVERY 2 WEEKS)
     Route: 042
     Dates: start: 20080312
  4. OXALIPLATIN [Suspect]
     Indication: COLON CANCER
     Dosage: 140 MG, UNK (EVERY 2 WEEK)
     Route: 042
     Dates: start: 20080312
  5. FLUOROURACIL [Suspect]
     Indication: COLON CANCER
     Dosage: 600 MG, UNK
     Route: 042
     Dates: start: 20080312
  6. FLUOROURACIL [Suspect]
     Dosage: 3960 MG (3960 MG, CONTINUOUS IV INFUSION, EVERY 2 WEEKS)
     Route: 042
     Dates: start: 20080312
  7. TENORMIN [Concomitant]
     Indication: DRUG USE FOR UNKNOWN INDICATION
     Route: 048
  8. CLONIDINE HCL [Concomitant]
     Indication: DRUG USE FOR UNKNOWN INDICATION
     Route: 048
  9. HYZAAR [Concomitant]
     Indication: DRUG USE FOR UNKNOWN INDICATION
     Dates: start: 20070820, end: 20080319
  10. DIFLUCAN [Concomitant]
     Indication: DRUG USE FOR UNKNOWN INDICATION
     Dosage: UNK
     Route: 048
     Dates: start: 20080317

REACTIONS (3)
  - HYPOVOLAEMIA [None]
  - MUCOSAL INFLAMMATION [None]
  - PYREXIA [None]
